FAERS Safety Report 10174480 (Version 1)
Quarter: 2014Q2

REPORT INFORMATION
  Report Type: Spontaneous
  Country: FR (occurrence: FR)
  Receive Date: 20140515
  Receipt Date: 20140515
  Transmission Date: 20141212
  Serious: Yes (Hospitalization)
  Sender: FDA-Public Use
  Company Number: PHHY2014FR057643

PATIENT
  Age: 38 Year
  Sex: 0

DRUGS (1)
  1. ACETYLSALICYLIC ACID [Suspect]
     Dosage: 500 MG
     Route: 048

REACTIONS (2)
  - Anaphylactic reaction [Unknown]
  - Angioedema [Unknown]
